FAERS Safety Report 5422189-8 (Version None)
Quarter: 2007Q3

REPORT INFORMATION
  Report Type: 
  Country: None (occurrence: None)
  Receive Date: 20070821
  Receipt Date: 20070821
  Transmission Date: 20080115
  Serious: Yes (Hospitalization)
  Sender: FDA-Public Use
  Company Number: None

PATIENT
  Age: 71 Year
  Sex: Female

DRUGS (12)
  1. RANIBISUMAB (RANIBISUMAB) [Suspect]
     Indication: MACULAR DEGENERATION
     Dosage: 0.5ML, UNK, INTRAVITREAL
     Route: 050
     Dates: start: 20070122
  2. RANIBISUMAB (RANIBISUMAB) [Suspect]
     Indication: MACULAR DEGENERATION
     Dosage: 0.5ML, UNK, INTRAVITREAL
     Route: 050
     Dates: start: 20070219
  3. RANIBISUMAB (RANIBISUMAB) [Suspect]
     Indication: MACULAR DEGENERATION
     Dosage: 0.5ML, UNK, INTRAVITREAL
     Route: 050
     Dates: start: 20070326
  4. RANIBISUMAB (RANIBISUMAB) [Suspect]
     Indication: MACULAR DEGENERATION
     Dosage: 0.5ML, UNK, INTRAVITREAL
     Route: 050
     Dates: start: 20070426
  5. FOSAMAX [Concomitant]
  6. SIMVASTATIN [Concomitant]
  7. ISOSORBIDE DINITRATE [Concomitant]
  8. ATENOLOL [Concomitant]
  9. RANITIDINE [Concomitant]
  10. OCUVITE [Concomitant]
  11. ASPIRIN [Concomitant]
  12. VITAMIN CAP [Concomitant]

REACTIONS (1)
  - CHOLELITHIASIS [None]
